FAERS Safety Report 24911180 (Version 1)
Quarter: 2025Q1

REPORT INFORMATION
  Report Type: Spontaneous
  Country: US (occurrence: US)
  Receive Date: 20250131
  Receipt Date: 20250131
  Transmission Date: 20250408
  Serious: Yes (Hospitalization)
  Sender: SANOFI AVENTIS
  Company Number: US-SA-2025SA028283

PATIENT
  Age: 62 Year
  Sex: Male
  Weight: 70.91 kg

DRUGS (11)
  1. KEVZARA [Suspect]
     Active Substance: SARILUMAB
     Indication: Polymyalgia rheumatica
     Dosage: 200 MG, QOW
     Route: 058
     Dates: start: 20240913
  2. GABAPENTIN [Concomitant]
     Active Substance: GABAPENTIN
  3. CELECOXIB [Concomitant]
     Active Substance: CELECOXIB
  4. OXYCODONE [Concomitant]
     Active Substance: OXYCODONE
  5. ATORVASTATIN CALCIUM [Concomitant]
     Active Substance: ATORVASTATIN CALCIUM
  6. PREDNISONE [Concomitant]
     Active Substance: PREDNISONE
  7. TYLENOL [Concomitant]
     Active Substance: ACETAMINOPHEN
  8. CYCLOBENZAPRINE HYDROCHLORIDE [Concomitant]
     Active Substance: CYCLOBENZAPRINE HYDROCHLORIDE
  9. HYDROXYCHLOROQUINE SULFATE [Concomitant]
     Active Substance: HYDROXYCHLOROQUINE SULFATE
  10. ALEVE [Concomitant]
     Active Substance: NAPROXEN SODIUM
  11. ADVIL [Concomitant]
     Active Substance: IBUPROFEN

REACTIONS (2)
  - Neck injury [Unknown]
  - Respiratory tract congestion [Unknown]

NARRATIVE: CASE EVENT DATE: 20250103
